FAERS Safety Report 8896387 (Version 1)
Quarter: 2012Q4

REPORT INFORMATION
  Report Type: Spontaneous
  Country: US (occurrence: None)
  Receive Date: 20121101
  Receipt Date: 20121101
  Transmission Date: 20130627
  Serious: Yes (Hospitalization)
  Sender: FDA-Public Use
  Company Number: PIR#CC400157257

PATIENT
  Age: 61 Year
  Sex: Male

DRUGS (6)
  1. DEXTROSE [Suspect]
  2. VICODIN [Concomitant]
  3. FLOMAX [Concomitant]
  4. TAMSULOSIN [Concomitant]
  5. CYSPLATIN [Concomitant]
  6. INVESTIGATIONAL DRUG S-L: (TEGAFUR, GIMERACIL + OTERACIL) [Concomitant]

REACTIONS (1)
  - Ascites [None]
